FAERS Safety Report 8870272 (Version 1)
Quarter: 2012Q4

REPORT INFORMATION
  Report Type: 
  Country: JP (occurrence: JP)
  Receive Date: 20121026
  Receipt Date: 20121026
  Transmission Date: 20130627
  Serious: Yes (Hospitalization)
  Sender: FDA-Public Use
  Company Number: JP-MERCK-1210JPN011162

PATIENT
  Age: 40 Year
  Sex: Female

DRUGS (3)
  1. GLACTIV [Suspect]
     Indication: TYPE 2 DIABETES MELLITUS
     Dosage: 50 mg, qd
     Route: 048
     Dates: start: 20100607
  2. AMARYL [Suspect]
     Dosage: 3 mg, qd
     Route: 048
  3. ACTOS [Concomitant]

REACTIONS (1)
  - Enterocolitis [Recovered/Resolved]
